FAERS Safety Report 5910473-0 (Version None)
Quarter: 2008Q4

REPORT INFORMATION
  Report Type: 
  Country: None (occurrence: None)
  Receive Date: 20081006
  Receipt Date: 20081006
  Transmission Date: 20090506
  Serious: Yes (Other)
  Sender: FDA-Public Use
  Company Number: None

PATIENT
  Age: 35 Year
  Sex: Female
  Weight: 43.0917 kg

DRUGS (2)
  1. ALEVE [Suspect]
     Indication: MYALGIA
     Dosage: 2 TABLETS PO  1 DOSE
     Route: 048
     Dates: start: 19981124, end: 19981124
  2. ALEVE [Suspect]
     Indication: SYSTEMIC LUPUS ERYTHEMATOSUS
     Dosage: 2 TABLETS PO  1 DOSE
     Route: 048
     Dates: start: 19981124, end: 19981124

REACTIONS (5)
  - FATIGUE [None]
  - GAIT DISTURBANCE [None]
  - JAUNDICE [None]
  - PAIN [None]
  - RENAL PAIN [None]
